FAERS Safety Report 9088516 (Version 2)
Quarter: 2013Q1

REPORT INFORMATION
  Report Type: Report from Study
  Country: PT (occurrence: PT)
  Receive Date: 20130202
  Receipt Date: 20130220
  Transmission Date: 20140127
  Serious: Yes (Hospitalization)
  Sender: FDA-Public Use
  Company Number: PT-US-EMD SERONO, INC.-7190771

PATIENT
  Age: 39 None
  Sex: Male
  Weight: 81 kg

DRUGS (1)
  1. REBIF [Suspect]
     Indication: RELAPSING-REMITTING MULTIPLE SCLEROSIS
     Route: 058
     Dates: start: 201009

REACTIONS (2)
  - Skin necrosis [Not Recovered/Not Resolved]
  - Multiple sclerosis relapse [Unknown]
